FAERS Safety Report 9060393 (Version 1)
Quarter: 2013Q1

REPORT INFORMATION
  Report Type: Spontaneous
  Country: DE (occurrence: DE)
  Receive Date: 20130212
  Receipt Date: 20130212
  Transmission Date: 20140127
  Serious: Yes (Other)
  Sender: FDA-Public Use
  Company Number: DE-NAPPMUNDI-DEU-2013-0010506

PATIENT
  Age: 83 None
  Sex: Female

DRUGS (3)
  1. MORPHINE [Suspect]
     Indication: ANALGESIC THERAPY
     Dosage: 2 MG, UNK
     Route: 042
     Dates: start: 20130201, end: 20130201
  2. MORPHINE [Suspect]
     Indication: SEDATION
  3. CALCIUM ACETATE\MAGNESIUM ACETATE\POTASSIUM ACETATE\SODIUM ACETATE\SODIUM CHLORIDE [Concomitant]
     Indication: PRODUCT USED FOR UNKNOWN INDICATION
     Dosage: 500 ML, UNK
     Route: 042

REACTIONS (3)
  - Vomiting projectile [Unknown]
  - Application site pain [Unknown]
  - Application site erythema [Unknown]
